FAERS Safety Report 13152819 (Version 3)
Quarter: 2017Q1

REPORT INFORMATION
  Report Type: Spontaneous
  Country: US (occurrence: FR)
  Receive Date: 20170126
  Receipt Date: 20170209
  Transmission Date: 20170428
  Serious: Yes (Death, Hospitalization, Other)
  Sender: FDA-Public Use
  Company Number: FR-ASTRAZENECA-2017SE07254

PATIENT
  Age: 25670 Day
  Sex: Female

DRUGS (16)
  1. PARACETAMOL [Suspect]
     Active Substance: ACETAMINOPHEN
     Dosage: AS NEEDED
     Route: 065
  2. NATISPRAY [Concomitant]
     Active Substance: NITROGLYCERIN
  3. TRINITRINE [Concomitant]
     Active Substance: NITROGLYCERIN
  4. DUOPLAVIN [Suspect]
     Active Substance: ASPIRIN\CLOPIDOGREL
     Indication: MYOCARDIAL ISCHAEMIA
     Dosage: ONE DOSAGE FORM, ONCE DAILY
     Route: 065
     Dates: end: 20160704
  5. UPTRAVI [Suspect]
     Active Substance: SELEXIPAG
     Indication: PULMONARY ARTERIAL HYPERTENSION
     Route: 065
     Dates: start: 20160629, end: 20160704
  6. FUROSEMIDE. [Suspect]
     Active Substance: FUROSEMIDE
     Indication: MYOCARDIAL ISCHAEMIA
     Dosage: 60.0MG UNKNOWN
     Route: 042
     Dates: start: 20160701, end: 20160701
  7. REVATIO [Suspect]
     Active Substance: SILDENAFIL CITRATE
     Indication: PULMONARY ARTERIAL HYPERTENSION
     Route: 065
  8. TENORMIN [Concomitant]
     Active Substance: ATENOLOL
  9. RAMIPRIL. [Suspect]
     Active Substance: RAMIPRIL
     Indication: MYOCARDIAL ISCHAEMIA
     Route: 048
  10. TRACLEER [Suspect]
     Active Substance: BOSENTAN
     Indication: HYPERTENSION
     Route: 065
  11. FUROSEMIDE. [Suspect]
     Active Substance: FUROSEMIDE
     Indication: MYOCARDIAL ISCHAEMIA
     Dosage: 40.0MG UNKNOWN
     Route: 042
  12. FUROSEMIDE. [Suspect]
     Active Substance: FUROSEMIDE
     Indication: MYOCARDIAL ISCHAEMIA
     Dosage: 60.0MG UNKNOWN
     Route: 042
  13. UPTRAVI [Suspect]
     Active Substance: SELEXIPAG
     Indication: PULMONARY ARTERIAL HYPERTENSION
     Route: 065
     Dates: start: 20160622, end: 20160628
  14. INEXIUM [Suspect]
     Active Substance: ESOMEPRAZOLE
     Route: 048
     Dates: end: 20160704
  15. BISOPROLOL [Suspect]
     Active Substance: BISOPROLOL
     Indication: MYOCARDIAL ISCHAEMIA
     Route: 065
     Dates: end: 20160705
  16. BRILIQUE [Concomitant]
     Active Substance: TICAGRELOR

REACTIONS (10)
  - Tachypnoea [Unknown]
  - Abdominal pain upper [Not Recovered/Not Resolved]
  - Bundle branch block right [Unknown]
  - Tachycardia [Unknown]
  - Acute coronary syndrome [Fatal]
  - Cardio-respiratory arrest [Fatal]
  - Renal failure [Unknown]
  - Hypotension [Unknown]
  - Pain [Not Recovered/Not Resolved]
  - Product use issue [Unknown]

NARRATIVE: CASE EVENT DATE: 20160704
